FAERS Safety Report 19686851 (Version 2)
Quarter: 2021Q4

REPORT INFORMATION
  Report Type: Spontaneous
  Country: IT (occurrence: IT)
  Receive Date: 20210811
  Receipt Date: 20211008
  Transmission Date: 20220304
  Serious: Yes (Death, Other)
  Sender: FDA-Public Use
  Company Number: IT-PFIZER INC-2021146737

PATIENT
  Age: 63 Year
  Sex: Female

DRUGS (8)
  1. CISPLATIN [Suspect]
     Active Substance: CISPLATIN
     Indication: Breast cancer
     Dosage: 60 MG/M2, CYCLIC (ON DAY 1,2,3, REPEATED AFTER 28 DAYS)
  2. FUROSEMIDE [Concomitant]
     Active Substance: FUROSEMIDE
     Dosage: 20 MILLIGRAM, CYCLE
     Route: 040
  3. METOCLOPRAMIDE [Concomitant]
     Active Substance: METOCLOPRAMIDE
     Dosage: 1 MG/KG, CYCLIC
  4. METOCLOPRAMIDE [Concomitant]
     Active Substance: METOCLOPRAMIDE
     Dosage: 1 MG/KG, CYCLIC (ON DAY 1,2,3, REPEATED AFTER 28 DAYS)
  5. MAGNESIUM [Concomitant]
     Active Substance: MAGNESIUM
     Dosage: 3 MEQ, CYCLIC
  6. MAGNESIUM [Concomitant]
     Active Substance: MAGNESIUM
     Dosage: 3 MILLIEQUIVALENT, CYCLE (3 MEQ, CYCLIC (ON DAY 1,2,3, REPEATED AFTER 28 DAYS)
  7. KCL [Concomitant]
     Active Substance: POTASSIUM CHLORIDE
     Dosage: 5 MEQ, CYCLIC
  8. KCL [Concomitant]
     Active Substance: POTASSIUM CHLORIDE
     Dosage: 5 MILLIEQUIVALENT, CYCLE (5 MEQ, CYCLIC (ON DAY 1,2,3, REPEATED AFTER 28 DAYS)

REACTIONS (7)
  - Sepsis [Fatal]
  - Haematotoxicity [Unknown]
  - Neutropenia [Unknown]
  - Gastrointestinal toxicity [Unknown]
  - Nausea [Unknown]
  - Vomiting [Unknown]
  - Nephropathy toxic [Unknown]
